FAERS Safety Report 9342540 (Version 1)
Quarter: 2013Q2

REPORT INFORMATION
  Report Type: Spontaneous
  Country: NO (occurrence: NO)
  Receive Date: 20130611
  Receipt Date: 20130611
  Transmission Date: 20140414
  Serious: Yes (Other)
  Sender: FDA-Public Use
  Company Number: NO-ELI_LILLY_AND_COMPANY-NO201306001210

PATIENT
  Age: 38 Year
  Sex: Male

DRUGS (5)
  1. ZYPREXA [Suspect]
     Indication: ANXIETY
     Dosage: 10 MG, UNKNOWN
  2. EFEXOR [Interacting]
     Indication: ANXIETY
     Dosage: 75 MG, UNKNOWN
     Dates: start: 2005, end: 2006
  3. VENLAFAXINE [Interacting]
     Indication: ANXIETY
     Dosage: 15 MG, UNKNOWN
     Dates: start: 2004, end: 2005
  4. BUSPIRONE [Concomitant]
     Indication: PSORIATIC ARTHROPATHY
     Dosage: 20 MG, UNKNOWN
     Route: 048
     Dates: start: 2004, end: 2007
  5. METHOTREXATE [Interacting]
     Dosage: 1 DF, UNKNOWN

REACTIONS (5)
  - Motor dysfunction [Recovering/Resolving]
  - Drug interaction [Unknown]
  - Mental impairment [Recovering/Resolving]
  - Apraxia [Recovering/Resolving]
  - Tardive dyskinesia [Recovering/Resolving]
